FAERS Safety Report 15601388 (Version 1)
Quarter: 2018Q4

REPORT INFORMATION
  Report Type: Spontaneous
  Country: US (occurrence: US)
  Receive Date: 20181109
  Receipt Date: 20181109
  Transmission Date: 20190205
  Serious: Yes (Hospitalization)
  Sender: FDA-Public Use
  Company Number: None

PATIENT
  Sex: Male

DRUGS (6)
  1. AFINITOR [Suspect]
     Active Substance: EVEROLIMUS
     Indication: RENAL CANCER
     Route: 048
     Dates: start: 20181026
  2. MULTI VIT, OXYCOD/APAP [Concomitant]
  3. MAGNESIUM, METOPROLOL [Concomitant]
  4. ASPIRIN, ATORVASTATIN [Concomitant]
  5. LEVOTHYROXIN, LIPITOR [Concomitant]
  6. PHOSPHO-TRIN [Concomitant]

REACTIONS (1)
  - Hospitalisation [None]
